FAERS Safety Report 20582422 (Version 1)
Quarter: 2022Q1

REPORT INFORMATION
  Report Type: Report from Study
  Country: CN (occurrence: CN)
  Receive Date: 20220311
  Receipt Date: 20220311
  Transmission Date: 20220424
  Serious: Yes (Death)
  Sender: FDA-Public Use
  Company Number: CN-SUN PHARMACEUTICAL INDUSTRIES LTD-2022R1-329730

PATIENT

DRUGS (3)
  1. CISPLATIN [Suspect]
     Active Substance: CISPLATIN
     Indication: Chemotherapy
     Dosage: 60 MILLIGRAM/SQ. METER/ ON DAY 1/ 3 WEEK/ 4 CYCLES
     Route: 042
  2. DOCETAXEL [Suspect]
     Active Substance: DOCETAXEL
     Indication: Chemotherapy
     Dosage: 50 MILLIGRAM/SQ. METER/ ON DAY 1/ 3 WEEK/ 4 CYCLES
     Route: 042
  3. FLUOROURACIL [Suspect]
     Active Substance: FLUOROURACIL
     Indication: Chemotherapy
     Dosage: 500 MILLIGRAM/SQ. METER/ DAY 1-5/ 3 WEEK/ 4 CYCLES
     Route: 042

REACTIONS (1)
  - Disease recurrence [Fatal]
